FAERS Safety Report 13451125 (Version 1)
Quarter: 2017Q2

REPORT INFORMATION
  Report Type: Spontaneous
  Country: US (occurrence: US)
  Receive Date: 20170417
  Receipt Date: 20170417
  Transmission Date: 20170830
  Serious: Yes (Other)
  Sender: FDA-Public Use
  Company Number: None

PATIENT
  Age: 32 Year
  Sex: Male
  Weight: 108 kg

DRUGS (2)
  1. ZONISAMIDE. [Concomitant]
     Active Substance: ZONISAMIDE
  2. CITALOPRAM [Suspect]
     Active Substance: CITALOPRAM HYDROBROMIDE
     Indication: DEPRESSION
     Route: 048
     Dates: start: 20170201

REACTIONS (1)
  - Heterosexuality [None]

NARRATIVE: CASE EVENT DATE: 20170318
